FAERS Safety Report 8231814-8 (Version None)
Quarter: 2012Q1

REPORT INFORMATION
  Report Type: 
  Country: None (occurrence: None)
  Receive Date: 20120323
  Receipt Date: 20120314
  Transmission Date: 20120608
  Serious: Yes (Life-Threatening, Hospitalization)
  Sender: FDA-Public Use
  Company Number: ZA-JNJFOC-20120212478

PATIENT
  Sex: Female
  Weight: 60 kg

DRUGS (8)
  1. REVELLEX [Suspect]
     Indication: RHEUMATOID ARTHRITIS
     Route: 042
     Dates: start: 20090508
  2. METFORMIN HCL [Concomitant]
     Indication: DIABETES MELLITUS
     Dosage: STARTED BEFORE 2008
     Route: 065
  3. CELEBREX [Concomitant]
     Dosage: STARTED BEFORE 2008
     Route: 065
  4. PREXUM PLUS [Concomitant]
     Indication: HYPERTENSION
     Dosage: STARTED BEFORE 2008, IN DIVIDED DOSES
     Route: 065
  5. GLIMEPIRIDE [Concomitant]
     Indication: DIABETES MELLITUS
     Dosage: STARTED BEFORE 2008, DIVIDED DOSES
     Route: 065
  6. METHOTREXATE [Concomitant]
     Indication: RHEUMATOID ARTHRITIS
     Dosage: STARTED BEFORE 2008
     Route: 048
  7. PREDNISONE TAB [Concomitant]
     Indication: RHEUMATOID ARTHRITIS
     Dosage: STARTED BEFORE 2008
     Route: 065
  8. FOLIC ACID [Concomitant]
     Dosage: STARTED BEFORE 2008
     Route: 065

REACTIONS (1)
  - MYOCARDIAL INFARCTION [None]
